FAERS Safety Report 7562641-2 (Version None)
Quarter: 2011Q2

REPORT INFORMATION
  Report Type: 
  Country: None (occurrence: None)
  Receive Date: 20110622
  Receipt Date: 20110615
  Transmission Date: 20111010
  Serious: Yes (Hospitalization, Other)
  Sender: FDA-Public Use
  Company Number: US-SANOFI-AVENTIS-2011SA039087

PATIENT
  Age: 80 Year
  Sex: Female

DRUGS (5)
  1. MULTAQ [Suspect]
     Route: 048
     Dates: start: 20110501, end: 20110608
  2. DABIGATRAN [Suspect]
     Route: 065
     Dates: start: 20110501
  3. ZITHROMAX [Concomitant]
     Route: 065
     Dates: start: 20110501
  4. COUMADIN [Concomitant]
     Route: 065
     Dates: end: 20110501
  5. AMIODARONE HCL [Concomitant]
     Route: 065
     Dates: start: 20110401, end: 20110501

REACTIONS (2)
  - PULMONARY OEDEMA [None]
  - PNEUMONITIS [None]
